FAERS Safety Report 5709321-3 (Version None)
Quarter: 2008Q2

REPORT INFORMATION
  Report Type: 
  Country: None (occurrence: None)
  Receive Date: 20080417
  Receipt Date: 20080417
  Transmission Date: 20081010
  Serious: Yes (Other)
  Sender: FDA-Public Use
  Company Number: None

PATIENT
  Sex: Female
  Weight: 200 kg

DRUGS (2)
  1. NEFEDICAL XL 60 MG - MYLAN [Suspect]
     Indication: BLOOD PRESSURE
     Dosage: 1 DAILY NOV. - MARCH CHANGED CO
  2. NEFEDICAL XL 60 MG - MYLAN [Suspect]
     Indication: HYPERTENSION
     Dosage: 1 DAILY NOV. - MARCH CHANGED CO

REACTIONS (2)
  - BLOOD PRESSURE DECREASED [None]
  - MEDICATION RESIDUE [None]
